FAERS Safety Report 14146573 (Version 1)
Quarter: 2017Q4

REPORT INFORMATION
  Report Type: Spontaneous
  Country: JP (occurrence: JP)
  Receive Date: 20171031
  Receipt Date: 20171031
  Transmission Date: 20180321
  Serious: Yes (Hospitalization)
  Sender: FDA-Public Use
  Company Number: JP-SA-2017SA210277

PATIENT
  Age: 62 Year
  Sex: Male

DRUGS (1)
  1. DAONIL [Suspect]
     Active Substance: GLYBURIDE
     Route: 048

REACTIONS (6)
  - Memory impairment [Recovering/Resolving]
  - Disorientation [Recovering/Resolving]
  - Ataxia [Recovering/Resolving]
  - Gait disturbance [Recovering/Resolving]
  - Depressed level of consciousness [Recovering/Resolving]
  - Hypoglycaemic encephalopathy [Recovering/Resolving]
